FAERS Safety Report 12464820 (Version 1)
Quarter: 2016Q2

REPORT INFORMATION
  Report Type: Report from Study
  Country: CA (occurrence: CA)
  Receive Date: 20160614
  Receipt Date: 20160614
  Transmission Date: 20160815
  Serious: Yes (Hospitalization)
  Sender: FDA-Public Use
  Company Number: CA-ABBVIE-16K-028-1629028-00

PATIENT
  Age: 73 Year
  Sex: Male
  Weight: 113.5 kg

DRUGS (2)
  1. HUMIRA [Suspect]
     Active Substance: ADALIMUMAB
     Route: 058
  2. HUMIRA [Suspect]
     Active Substance: ADALIMUMAB
     Indication: PSORIASIS
     Route: 058
     Dates: start: 20150715, end: 2016

REACTIONS (5)
  - Fall [Recovered/Resolved]
  - Gastroenteritis viral [Recovered/Resolved]
  - Skin wound [Unknown]
  - Adverse event [Not Recovered/Not Resolved]
  - Eye injury [Recovering/Resolving]

NARRATIVE: CASE EVENT DATE: 2016
